FAERS Safety Report 15895841 (Version 2)
Quarter: 2021Q2

REPORT INFORMATION
  Report Type: Spontaneous
  Country: US (occurrence: US)
  Receive Date: 20190131
  Receipt Date: 20210505
  Transmission Date: 20210716
  Serious: Yes (Other)
  Sender: FDA-Public Use
  Company Number: US-PFIZER INC-2019044427

PATIENT
  Age: 68 Year
  Sex: Female

DRUGS (1)
  1. XELJANZ [Suspect]
     Active Substance: TOFACITINIB CITRATE
     Dosage: TOOK 1 TABLET (5MG) EVERY DAY BY ORAL ROUTE FOR 30 DAYS
     Route: 048

REACTIONS (3)
  - Condition aggravated [Unknown]
  - Hepatic steatosis [Unknown]
  - Hepatic fibrosis [Unknown]
